FAERS Safety Report 6082976-2 (Version None)
Quarter: 2009Q1

REPORT INFORMATION
  Report Type: 
  Country: None (occurrence: None)
  Receive Date: 20090218
  Receipt Date: 20090210
  Transmission Date: 20090719
  Serious: Yes (Other)
  Sender: FDA-Public Use
  Company Number: JP-ROXANE LABORATORIES, INC.-2009-RO-00141RO

PATIENT

DRUGS (3)
  1. LITHIUM CARBONATE [Suspect]
  2. VALPROATE SODIUM [Suspect]
     Indication: MANIA
  3. CLONAZEPAM [Suspect]
     Indication: MANIA

REACTIONS (2)
  - MANIA [None]
  - NEUROTOXICITY [None]
